FAERS Safety Report 5802058-1 (Version None)
Quarter: 2008Q3

REPORT INFORMATION
  Report Type: 
  Country: None (occurrence: None)
  Receive Date: 20080707
  Receipt Date: 20080625
  Transmission Date: 20090109
  Serious: Yes (Other)
  Sender: FDA-Public Use
  Company Number: US-PFIZER INC-2008053645

PATIENT
  Sex: Male
  Weight: 115.7 kg

DRUGS (12)
  1. ZITHROMAX [Suspect]
     Indication: BRONCHITIS
  2. ZITHROMAX [Suspect]
     Indication: COUGH
  3. VALSARTAN [Concomitant]
  4. ATENOLOL [Concomitant]
  5. DIGOXIN [Concomitant]
  6. METOPROLOL SUCCINATE [Concomitant]
  7. DIGITEK [Concomitant]
  8. POTASSIUM CHLORIDE [Concomitant]
  9. FUROSEMIDE [Concomitant]
  10. HYDROXYZINE HCL [Concomitant]
  11. PRILOSEC [Concomitant]
  12. ZAROXOLYN [Concomitant]

REACTIONS (10)
  - ABDOMINAL PAIN UPPER [None]
  - COUGH [None]
  - DRUG INEFFECTIVE [None]
  - DYSPNOEA [None]
  - ELECTROCARDIOGRAM ABNORMAL [None]
  - FLUID RETENTION [None]
  - INCREASED UPPER AIRWAY SECRETION [None]
  - MEDICATION ERROR [None]
  - RHINORRHOEA [None]
  - WEIGHT DECREASED [None]
